FAERS Safety Report 9251093 (Version 1)
Quarter: 2013Q1

REPORT INFORMATION
  Report Type: Spontaneous
  Country: US (occurrence: None)
  Receive Date: 20130305
  Receipt Date: 20130305
  Transmission Date: 20140127
  Serious: Yes (Other)
  Sender: FDA-Public Use
  Company Number: 163-21880-12071309

PATIENT
  Age: 87 Year
  Sex: Female
  Weight: 77.11 kg

DRUGS (7)
  1. REVLIMID [Suspect]
     Indication: MYELODYSPLASTIC SYNDROME
     Route: 048
     Dates: start: 20120619, end: 20120623
  2. PREMARIN (ESTROGENS CONJUGATED) [Concomitant]
  3. ASPIRIN (ACETYLSALICYLIC ACID) [Concomitant]
  4. MULTIVITAMINS [Concomitant]
  5. TRIAMCINOLONE [Concomitant]
  6. CALCIUM + VITAMIN D (LEKOVIT CA) [Concomitant]
  7. FISH OIL (FISH OIL) [Concomitant]

REACTIONS (1)
  - Rash generalised [None]
